FAERS Safety Report 5787100-9 (Version None)
Quarter: 2008Q2

REPORT INFORMATION
  Report Type: 
  Country: None (occurrence: None)
  Receive Date: 20080625
  Receipt Date: 20080618
  Transmission Date: 20081010
  Serious: Yes (Other)
  Sender: FDA-Public Use
  Company Number: JP-BRISTOL-MYERS SQUIBB COMPANY-14232219

PATIENT
  Age: 84 Year
  Sex: Male

DRUGS (28)
  1. GATIFLOXACIN [Suspect]
     Indication: NASOPHARYNGITIS
     Route: 048
     Dates: start: 20080323, end: 20080324
  2. HOKUNALIN [Concomitant]
     Route: 062
  3. BISOLVON [Concomitant]
     Route: 055
  4. MEPTIN [Concomitant]
     Route: 055
  5. ITOROL [Concomitant]
     Route: 048
  6. MUCOSTA [Concomitant]
     Route: 048
  7. LONGES [Concomitant]
     Route: 048
  8. LASIX [Concomitant]
     Route: 048
  9. ASPIRIN [Concomitant]
     Route: 048
  10. ADALAT [Concomitant]
     Route: 048
  11. FLUTIDE [Concomitant]
     Dosage: FLUTIDE DISKUS
     Route: 055
  12. GLYBURIDE [Concomitant]
     Indication: DIABETES MELLITUS
     Route: 048
  13. MELBIN [Concomitant]
     Indication: DIABETES MELLITUS
     Route: 048
  14. BASEN [Concomitant]
     Indication: DIABETES MELLITUS
     Route: 048
  15. TAMSULOSIN HCL [Concomitant]
     Dosage: 0.1MG/DAY
     Route: 048
  16. VEEN-F [Concomitant]
     Route: 041
  17. GLUCOSE [Concomitant]
     Route: 041
  18. ISOTONIC SODIUM CHLORIDE [Concomitant]
     Dosage: ISOTONIC SODIUM CHLORIDE SOLUTION
     Route: 041
  19. ACETATED RINGERS [Concomitant]
     Route: 041
  20. SOLU-MEDROL [Concomitant]
     Route: 041
  21. DEXTROMETHORPHAN HYDROBROMIDE [Concomitant]
     Route: 048
     Dates: start: 20080323, end: 20080324
  22. KENTAN [Concomitant]
     Route: 048
     Dates: start: 20080323, end: 20080324
  23. CLEMASTINE FUMARATE [Concomitant]
     Route: 048
     Dates: start: 20080324, end: 20080324
  24. AMBROXOL HCL [Concomitant]
     Route: 048
     Dates: start: 20080323, end: 20080324
  25. CODEINE SUL TAB [Concomitant]
     Route: 048
     Dates: start: 20080323, end: 20080324
  26. ULGUT [Concomitant]
     Route: 048
  27. GLYCORAN [Concomitant]
     Route: 048
  28. GLUCOBAY [Concomitant]
     Route: 048

REACTIONS (1)
  - HYPOGLYCAEMIA [None]
